FAERS Safety Report 6418280-X (Version None)
Quarter: 2009Q4

REPORT INFORMATION
  Report Type: 
  Country: None (occurrence: None)
  Receive Date: 20091021
  Receipt Date: 20090626
  Transmission Date: 20100525
  Serious: No
  Sender: FDA-Public Use
  Company Number: ALL1-2009-01643

PATIENT
  Age: 5 Year
  Sex: Male
  Weight: 12.9 kg

DRUGS (2)
  1. VYVANSE [Suspect]
     Indication: ATTENTION DEFICIT/HYPERACTIVITY DISORDER
     Dosage: 20 MG, 1X/DAY; QD, ORAL
     Route: 048
     Dates: start: 20090529, end: 20090615
  2. MULTIVITAMIN (ASCORBIC ACID, CALCIUM PANTOTHENATE, ERGOCALCIFEROL, NIC [Concomitant]

REACTIONS (3)
  - DISTURBANCE IN SOCIAL BEHAVIOUR [None]
  - OFF LABEL USE [None]
  - WEIGHT DECREASED [None]
